FAERS Safety Report 22962423 (Version 3)
Quarter: 2023Q4

REPORT INFORMATION
  Report Type: Spontaneous
  Country: JP (occurrence: JP)
  Receive Date: 20230920
  Receipt Date: 20231121
  Transmission Date: 20240109
  Serious: Yes (Other)
  Sender: FDA-Public Use
  Company Number: JP-MSD-M2023-38788

PATIENT
  Age: 80 Year
  Sex: Male

DRUGS (5)
  1. LAGEVRIO [Suspect]
     Active Substance: MOLNUPIRAVIR
     Indication: COVID-19 treatment
     Dosage: 800 MILLIGRAM, BID
     Route: 048
     Dates: start: 20230904, end: 20230907
  2. LAGEVRIO [Suspect]
     Active Substance: MOLNUPIRAVIR
     Dosage: 800 MILLIGRAM, ONCE
     Route: 048
     Dates: start: 20230908, end: 20230908
  3. CALONAL [Concomitant]
     Active Substance: ACETAMINOPHEN
     Indication: Antipyresis
     Dosage: 500 MILLIGRAM
     Route: 048
     Dates: start: 20230904
  4. TRANEXAMIC ACID [Concomitant]
     Active Substance: TRANEXAMIC ACID
     Indication: COVID-19 treatment
     Dosage: 500 MILLIGRAM, TID
     Route: 048
     Dates: start: 20230904
  5. GOKOTO [Concomitant]
     Indication: COVID-19 treatment
     Dosage: UNK
     Route: 048
     Dates: start: 20230904

REACTIONS (2)
  - Urinary retention [Recovered/Resolved]
  - Benign prostatic hyperplasia [Recovering/Resolving]

NARRATIVE: CASE EVENT DATE: 20230901
